FAERS Safety Report 7770656-4 (Version None)
Quarter: 2011Q3

REPORT INFORMATION
  Report Type: 
  Country: None (occurrence: None)
  Receive Date: 20110922
  Receipt Date: 20110509
  Transmission Date: 20111222
  Serious: No
  Sender: FDA-Public Use
  Company Number: US-ASTRAZENECA-2011SE27931

PATIENT
  Age: 47 Year
  Sex: Female

DRUGS (6)
  1. SYNTHROID [Concomitant]
  2. BIRTH CONTROL [Concomitant]
  3. ATENOLOL [Concomitant]
  4. SEROQUEL XR [Suspect]
     Indication: BIPOLAR I DISORDER
     Route: 048
     Dates: start: 20110401
  5. LAMICTAL [Concomitant]
  6. LITHIUM CARBONATE [Concomitant]

REACTIONS (1)
  - SPEECH DISORDER [None]
